FAERS Safety Report 24550552 (Version 1)
Quarter: 2024Q4

REPORT INFORMATION
  Report Type: Spontaneous
  Country: US (occurrence: US)
  Receive Date: 20241025
  Receipt Date: 20241025
  Transmission Date: 20250114
  Serious: Yes (Hospitalization, Other)
  Sender: PFIZER
  Company Number: US-PFIZER INC-PV202400137791

PATIENT
  Age: 61 Year
  Sex: Female

DRUGS (1)
  1. XELJANZ [Suspect]
     Active Substance: TOFACITINIB CITRATE
     Indication: Rheumatoid arthritis
     Dosage: 5 MG, 2X/DAY
     Route: 048
     Dates: start: 2019

REACTIONS (9)
  - Pneumonia [Unknown]
  - Sepsis [Unknown]
  - Pulmonary fibrosis [Not Recovered/Not Resolved]
  - Neuropathy peripheral [Not Recovered/Not Resolved]
  - Brain injury [Not Recovered/Not Resolved]
  - Flatulence [Unknown]
  - Dyspnoea [Unknown]
  - Condition aggravated [Unknown]
  - Amnesia [Not Recovered/Not Resolved]
